FAERS Safety Report 8532819-X (Version None)
Quarter: 2012Q3

REPORT INFORMATION
  Report Type: 
  Country: None (occurrence: None)
  Receive Date: 20120724
  Receipt Date: 20120723
  Transmission Date: 20120928
  Serious: Yes (Hospitalization)
  Sender: FDA-Public Use
  Company Number: PHHY2011JP103133

PATIENT
  Sex: Female

DRUGS (8)
  1. SIOPELMIN L [Concomitant]
     Dosage: 20 MG, UNK
     Route: 048
  2. DIOVAN HCT [Suspect]
     Indication: HYPERTENSION
     Dosage: 1 DF, DAILY (80/6.25 MG)
     Route: 048
  3. HALCION [Concomitant]
     Dosage: 0.25 MG
     Route: 048
  4. CRESTOR [Concomitant]
     Dosage: 2.5 MG, UNK
     Route: 048
  5. DIOVAN [Suspect]
     Indication: HYPERTENSION
     Dosage: 80 MG DAILY
     Route: 048
  6. ZANTAC [Concomitant]
     Dosage: 75 MG, UNK
     Route: 048
  7. PROPAFENONE HYDROCHLORIDE [Suspect]
     Dosage: UNK
     Route: 048
  8. MENATETRENONE [Concomitant]
     Dosage: 30 MG
     Route: 048

REACTIONS (6)
  - BRADYCARDIA [None]
  - BLOOD GLUCOSE INCREASED [None]
  - PROTEIN TOTAL DECREASED [None]
  - MALAISE [None]
  - HYPOTENSION [None]
  - HYPERKALAEMIA [None]
